FAERS Safety Report 23957555 (Version 1)
Quarter: 2024Q2

REPORT INFORMATION
  Report Type: Spontaneous
  Country: GB (occurrence: GB)
  Receive Date: 20240610
  Receipt Date: 20240610
  Transmission Date: 20240715
  Serious: Yes (Other)
  Sender: FDA-Public Use
  Company Number: GB-MHRA-TPP19885546C8573998YC1717428777170

PATIENT
  Age: 29 Year
  Sex: Female

DRUGS (6)
  1. IBUPROFEN [Suspect]
     Active Substance: IBUPROFEN
     Indication: Ill-defined disorder
     Route: 065
  2. CODEINE PHOSPHATE [Concomitant]
     Active Substance: CODEINE PHOSPHATE
     Indication: Pain
     Dosage: UP TO FOUR TIMES DAILY, FOR PAIN...
     Dates: start: 20240603
  3. DICLOFENAC DIETHYLAMINE [Concomitant]
     Active Substance: DICLOFENAC DIETHYLAMINE
     Dosage: APPLY
     Dates: start: 20240603
  4. FLUOXETINE [Concomitant]
     Active Substance: FLUOXETINE HYDROCHLORIDE
     Dosage: EVERY MORNING. MEDICATION FOR ...
     Dates: start: 20220901
  5. FOLIC ACID [Concomitant]
     Active Substance: FOLIC ACID
     Dosage: TAKE ONE DAILY EXCEPT ON METHOTREXATE DAY
     Dates: start: 20221216
  6. METHOTREXATE SODIUM [Concomitant]
     Active Substance: METHOTREXATE SODIUM
     Dosage: SATURDAY
     Dates: start: 20240103

REACTIONS (1)
  - Lip swelling [Recovered/Resolved]
